FAERS Safety Report 6816154-3 (Version None)
Quarter: 2010Q3

REPORT INFORMATION
  Report Type: 
  Country: None (occurrence: None)
  Receive Date: 20100702
  Receipt Date: 20100702
  Transmission Date: 20110219
  Serious: Yes (Hospitalization)
  Sender: FDA-Public Use
  Company Number: None

PATIENT
  Sex: Female
  Weight: 61.2356 kg

DRUGS (1)
  1. YAZ [Suspect]
     Indication: CONTRACEPTION
     Dates: start: 20080415, end: 20100101

REACTIONS (6)
  - CHOLECYSTECTOMY [None]
  - DYSPEPSIA [None]
  - HYPOPHAGIA [None]
  - PAIN [None]
  - SUTURE RUPTURE [None]
  - WEIGHT DECREASED [None]
